FAERS Safety Report 4959154-0 (Version None)
Quarter: 2006Q1

REPORT INFORMATION
  Report Type: 
  Country: None (occurrence: None)
  Receive Date: 20060330
  Receipt Date: 20060330
  Transmission Date: 20060701
  Serious: Yes (Hospitalization)
  Sender: FDA-Public Use
  Company Number: None

PATIENT
  Age: 57 Year
  Sex: Female

DRUGS (1)
  1. DICLOFENAC SODIUM [Suspect]
     Indication: OSTEOARTHRITIS
     Dosage: PO
     Route: 048
     Dates: start: 20050912, end: 20050917

REACTIONS (5)
  - ABASIA [None]
  - ERYTHEMA MULTIFORME [None]
  - HEART RATE INCREASED [None]
  - LYMPHADENOPATHY [None]
  - SKIN NODULE [None]
